FAERS Safety Report 7245877-X (Version None)
Quarter: 2011Q1

REPORT INFORMATION
  Report Type: 
  Country: None (occurrence: None)
  Receive Date: 20110126
  Receipt Date: 20110113
  Transmission Date: 20110831
  Serious: Yes (Other)
  Sender: FDA-Public Use
  Company Number: US-ELI_LILLY_AND_COMPANY-US201101003963

PATIENT
  Sex: Male

DRUGS (1)
  1. STRATTERA [Suspect]
     Dates: end: 20110110

REACTIONS (4)
  - APPENDICITIS [None]
  - SURGICAL SKIN TEAR [None]
  - DEPRESSED MOOD [None]
  - WEIGHT DECREASED [None]
